FAERS Safety Report 15247620 (Version 2)
Quarter: 2018Q3

REPORT INFORMATION
  Report Type: Spontaneous
  Country: US (occurrence: US)
  Receive Date: 20180807
  Receipt Date: 20180917
  Transmission Date: 20181010
  Serious: No
  Sender: FDA-Public Use
  Company Number: US-ASTRAZENECA-2018SE93247

PATIENT
  Age: 7357 Day
  Sex: Male
  Weight: 68.7 kg

DRUGS (3)
  1. BREO ELLIPTA [Concomitant]
     Active Substance: FLUTICASONE FUROATE\VILANTEROL TRIFENATATE
     Indication: ASTHMA
     Route: 065
     Dates: start: 20180625, end: 20180714
  2. SYMBICORT [Suspect]
     Active Substance: BUDESONIDE\FORMOTEROL FUMARATE DIHYDRATE
     Indication: ASTHMA
     Dosage: 1 PUFF, TWICE A DAY
     Route: 055
     Dates: start: 20180628, end: 20180714
  3. SINGULAIR [Concomitant]
     Active Substance: MONTELUKAST SODIUM
     Indication: ASTHMA
     Route: 065
     Dates: start: 20180625, end: 20180714

REACTIONS (7)
  - Circumstance or information capable of leading to medication error [Recovered/Resolved]
  - Off label use [Recovered/Resolved]
  - Asthma [Unknown]
  - Heart rate increased [Unknown]
  - Panic attack [Recovered/Resolved]
  - Feeling abnormal [Unknown]
  - Dizziness [Unknown]

NARRATIVE: CASE EVENT DATE: 20180628
